FAERS Safety Report 10238405 (Version 1)
Quarter: 2014Q2

REPORT INFORMATION
  Report Type: Spontaneous
  Country: US (occurrence: US)
  Receive Date: 20140616
  Receipt Date: 20140616
  Transmission Date: 20141212
  Serious: No
  Sender: FDA-Public Use
  Company Number: US-ASTRAZENECA-2014SE39185

PATIENT
  Sex: Female

DRUGS (2)
  1. SEROQUEL [Suspect]
     Dosage: DIFFERENT DOSAGES OF SEROQUEL
     Route: 048
  2. SEROQUEL [Suspect]
     Route: 048

REACTIONS (1)
  - Feeling abnormal [Unknown]
